FAERS Safety Report 6500517-X (Version None)
Quarter: 2009Q4

REPORT INFORMATION
  Report Type: 
  Country: None (occurrence: None)
  Receive Date: 20091216
  Receipt Date: 20091209
  Transmission Date: 20100525
  Serious: Yes (Hospitalization)
  Sender: FDA-Public Use
  Company Number: JP-BAYER-200811784BYL

PATIENT
  Age: 57 Year
  Sex: Male
  Weight: 73 kg

DRUGS (4)
  1. NEXAVAR [Suspect]
     Indication: RENAL CELL CARCINOMA
     Dosage: AS USED: 800 MG  UNIT DOSE: 200 MG
     Route: 048
     Dates: start: 20080626, end: 20080715
  2. NEXAVAR [Suspect]
     Dosage: UNIT DOSE: 200 MG
     Route: 048
     Dates: start: 20080807, end: 20081006
  3. NEXAVAR [Suspect]
     Dosage: UNIT DOSE: 200 MG
     Route: 048
     Dates: start: 20081007, end: 20081120
  4. JUZEN-TAIHO-TO [Concomitant]
     Indication: PAIN
     Route: 048
     Dates: start: 20080630, end: 20080714

REACTIONS (7)
  - ALOPECIA [None]
  - BLOOD AMYLASE INCREASED [None]
  - DECREASED APPETITE [None]
  - HYPERTENSION [None]
  - LIPASE INCREASED [None]
  - NAUSEA [None]
  - PNEUMONIA ASPIRATION [None]
